FAERS Safety Report 6658170-0 (Version None)
Quarter: 2010Q1

REPORT INFORMATION
  Report Type: 
  Country: None (occurrence: None)
  Receive Date: 20100330
  Receipt Date: 20100318
  Transmission Date: 20100710
  Serious: Yes (Other)
  Sender: FDA-Public Use
  Company Number: B0640557A

PATIENT
  Sex: Male

DRUGS (6)
  1. ELTROMBOPAG [Suspect]
     Indication: IDIOPATHIC THROMBOCYTOPENIC PURPURA
     Dosage: 25MG PER DAY
     Route: 048
     Dates: start: 20091127, end: 20100218
  2. SALINE [Concomitant]
  3. PARIET [Concomitant]
  4. STILNOX [Concomitant]
  5. SOLU-MEDROL [Concomitant]
  6. DEXAMETHASONE [Concomitant]

REACTIONS (1)
  - LEUKOERYTHROBLASTOSIS [None]
